FAERS Safety Report 16003632 (Version 1)
Quarter: 2019Q1

REPORT INFORMATION
  Report Type: Spontaneous
  Country: US (occurrence: US)
  Receive Date: 20190226
  Receipt Date: 20190226
  Transmission Date: 20190418
  Serious: Yes (Other)
  Sender: FDA-Public Use
  Company Number: US-PFIZER INC-2016493631

PATIENT
  Age: 69 Year
  Sex: Female
  Weight: 55.78 kg

DRUGS (1)
  1. LYRICA [Suspect]
     Active Substance: PREGABALIN
     Dosage: UNK

REACTIONS (3)
  - Rib fracture [Unknown]
  - Pain [Unknown]
  - Impaired driving ability [Unknown]
